FAERS Safety Report 5055520-6 (Version None)
Quarter: 2006Q3

REPORT INFORMATION
  Report Type: 
  Country: None (occurrence: None)
  Receive Date: 20060714
  Receipt Date: 20060629
  Transmission Date: 20061208
  Serious: Yes (Death)
  Sender: FDA-Public Use
  Company Number: COT_0628_2006

PATIENT
  Age: 77 Year
  Sex: Female
  Weight: 72.5755 kg

DRUGS (14)
  1. VENTAVIS [Suspect]
     Indication: PULMONARY HYPERTENSION
     Dosage: 2.5 MCG ONCE IH
     Route: 025
     Dates: start: 20060609, end: 20060609
  2. VENTAVIS [Suspect]
     Indication: PULMONARY HYPERTENSION
     Dosage: 5 MCG 6XD IH
     Route: 025
     Dates: start: 20060609
  3. LASIX [Concomitant]
  4. SILDENAFIL CITRATE [Concomitant]
  5. KLOR-CON [Concomitant]
  6. ATENOLOL [Concomitant]
  7. OXYCODONE HCL [Concomitant]
  8. CENTRUM [Concomitant]
  9. ASPIRIN [Concomitant]
  10. PRILOSEC [Concomitant]
  11. LORAZEPAM [Concomitant]
  12. IBUPROFEN [Concomitant]
  13. CALCIUM GLUCONATE [Concomitant]
  14. OXYGEN [Concomitant]

REACTIONS (2)
  - CONDITION AGGRAVATED [None]
  - PULMONARY FIBROSIS [None]
